FAERS Safety Report 9554958 (Version 1)
Quarter: 2013Q3

REPORT INFORMATION
  Report Type: Spontaneous
  Country: CA (occurrence: CA)
  Receive Date: 20130926
  Receipt Date: 20130926
  Transmission Date: 20140515
  Serious: Yes (Hospitalization)
  Sender: FDA-Public Use
  Company Number: CA-ROCHE-1280447

PATIENT
  Sex: Male
  Weight: 85 kg

DRUGS (3)
  1. PEGASYS [Suspect]
     Indication: PRODUCT USED FOR UNKNOWN INDICATION
     Dosage: THERAPY DURATION 48 DAYS
     Route: 058
  2. RIBAVIRIN [Suspect]
     Indication: PRODUCT USED FOR UNKNOWN INDICATION
     Dosage: THERAPY DURATION 48 DAYS.
     Route: 048
  3. INCIVEK [Suspect]
     Indication: PRODUCT USED FOR UNKNOWN INDICATION
     Dosage: THERAPY DURATION 48 DAYS.
     Route: 065

REACTIONS (3)
  - Anaemia [Unknown]
  - Pyrexia [Unknown]
  - Rash generalised [Unknown]
